FAERS Safety Report 19375898 (Version 1)
Quarter: 2021Q2

REPORT INFORMATION
  Report Type: Report from Study
  Country: BR (occurrence: BR)
  Receive Date: 20210604
  Receipt Date: 20210604
  Transmission Date: 20210717
  Serious: Yes (Other)
  Sender: FDA-Public Use
  Company Number: BR-UCBSA-2021025849

PATIENT
  Age: 71 Year
  Sex: Female
  Weight: 67 kg

DRUGS (6)
  1. CERTOLIZUMAB PEGOL RA [Suspect]
     Active Substance: CERTOLIZUMAB PEGOL
     Indication: RHEUMATOID ARTHRITIS
     Dosage: 200 MILLIGRAM, EV 15 DAYS
     Route: 058
     Dates: start: 201808
  2. LEFLUNOMIDA [Concomitant]
     Active Substance: LEFLUNOMIDE
     Indication: RHEUMATOID ARTHRITIS
     Route: 048
  3. ARTICO [Concomitant]
     Indication: OSTEOARTHRITIS
     Dosage: 500 MILLIGRAM, UNK
     Route: 048
     Dates: start: 2018
  4. DEFLAZACORTE [Concomitant]
     Active Substance: DEFLAZACORT
     Indication: ANALGESIC THERAPY
     Dosage: 7.5 MILLIGRAM, UNK
     Route: 048
  5. CYMBI [AMPICILLIN TRIHYDRATE] [Concomitant]
     Indication: ANALGESIC THERAPY
     Dosage: 60 MILLIGRAM, UNK
     Route: 048
     Dates: start: 202008
  6. PREBICTAL [Concomitant]
     Active Substance: PREGABALIN
     Indication: ANALGESIC THERAPY
     Dosage: 75 MILLIGRAM, UNK
     Route: 048
     Dates: start: 202008

REACTIONS (6)
  - COVID-19 [Recovered/Resolved]
  - Fall [Unknown]
  - Pain in extremity [Not Recovered/Not Resolved]
  - Spinal pain [Not Recovered/Not Resolved]
  - Eye swelling [Not Recovered/Not Resolved]
  - Ligament rupture [Not Recovered/Not Resolved]

NARRATIVE: CASE EVENT DATE: 202006
